FAERS Safety Report 8169992-1 (Version None)
Quarter: 2012Q1

REPORT INFORMATION
  Report Type: 
  Country: None (occurrence: None)
  Receive Date: 20120228
  Receipt Date: 20120215
  Transmission Date: 20120608
  Serious: Yes (Hospitalization, Other)
  Sender: FDA-Public Use
  Company Number: US-ELI_LILLY_AND_COMPANY-US201110000521

PATIENT
  Sex: Female
  Weight: 63.492 kg

DRUGS (7)
  1. HUMATROPE [Suspect]
     Indication: GROWTH HORMONE DEFICIENCY
     Dosage: 0.20 MG, UNKNOWN
  2. HUMATROPE [Suspect]
     Dosage: 0.70 MG, QD
     Route: 058
     Dates: start: 20100401
  3. HUMATROPE [Suspect]
     Dosage: 0.70 MG, QD
     Route: 058
  4. THYROXIN [Concomitant]
  5. HYDROCORTISONE [Concomitant]
  6. HUMATROPE [Suspect]
     Dosage: 0.30 MG, UNKNOWN
  7. ESTROGEN NOS [Concomitant]

REACTIONS (10)
  - HYPOAESTHESIA [None]
  - VISUAL IMPAIRMENT [None]
  - GASTROENTERITIS [None]
  - ADRENAL INSUFFICIENCY [None]
  - DEHYDRATION [None]
  - MUSCULOSKELETAL PAIN [None]
  - HOSPITALISATION [None]
  - JOINT DISLOCATION [None]
  - ANAEMIA [None]
  - INCORRECT DOSE ADMINISTERED [None]
